FAERS Safety Report 23693879 (Version 2)
Quarter: 2024Q2

REPORT INFORMATION
  Report Type: Spontaneous
  Country: BR (occurrence: BR)
  Receive Date: 20240401
  Receipt Date: 20240403
  Transmission Date: 20240716
  Serious: Yes (Other)
  Sender: FDA-Public Use
  Company Number: BR-MYLANLABS-2024M1028469

PATIENT
  Weight: 58 kg

DRUGS (4)
  1. XALATAN [Suspect]
     Active Substance: LATANOPROST
     Indication: Glaucoma
     Dosage: 1 GTT DROPS, QD
     Route: 047
     Dates: start: 2015
  2. XALATAN [Suspect]
     Active Substance: LATANOPROST
     Dosage: 1 GTT DROPS, QD
     Route: 047
     Dates: start: 2015
  3. CINNARIZINE [Concomitant]
     Active Substance: CINNARIZINE
     Indication: Labyrinthitis
     Dosage: UNK
     Route: 065
  4. COVID-19 vaccine [Concomitant]
     Indication: Immunisation
     Dosage: UNK
     Route: 065

REACTIONS (7)
  - Optic ischaemic neuropathy [Recovered/Resolved]
  - Blindness unilateral [Recovered/Resolved]
  - Diabetes mellitus [Not Recovered/Not Resolved]
  - Blood cholesterol increased [Not Recovered/Not Resolved]
  - Varicose vein [Not Recovered/Not Resolved]
  - Skin plaque [Unknown]
  - Product storage error [Recovered/Resolved]

NARRATIVE: CASE EVENT DATE: 20150101
